FAERS Safety Report 9003935 (Version 1)
Quarter: 2013Q1

REPORT INFORMATION
  Report Type: Spontaneous
  Country: US (occurrence: US)
  Receive Date: 20130108
  Receipt Date: 20130108
  Transmission Date: 20140127
  Serious: No
  Sender: FDA-Public Use
  Company Number: US-PFIZER INC-2013007693

PATIENT
  Age: 56 Year
  Sex: Male
  Weight: 86 kg

DRUGS (2)
  1. ADVIL [Suspect]
     Indication: MYALGIA
     Dosage: 200 MG, AS NEEDED
     Route: 048
  2. ADVIL [Suspect]
     Dosage: 200MG, TWO TIMES A DAY
     Route: 048

REACTIONS (1)
  - Lip swelling [Unknown]
